FAERS Safety Report 9222311 (Version 2)
Quarter: 2013Q2

REPORT INFORMATION
  Report Type: Spontaneous
  Country: US (occurrence: US)
  Receive Date: 20130410
  Receipt Date: 20130617
  Transmission Date: 20140414
  Serious: Yes (Death)
  Sender: FDA-Public Use
  Company Number: US-PFIZER INC-2013109249

PATIENT
  Age: 56 Year
  Sex: Male

DRUGS (2)
  1. VFEND [Suspect]
     Indication: ASPERGILLUS INFECTION
     Dosage: 200 MG, 3X/DAY
     Route: 048
  2. ANTINEOPLASTIC AGENTS [Concomitant]

REACTIONS (3)
  - Cardiac arrest [Fatal]
  - Respiratory distress [Fatal]
  - Pulmonary embolism [Fatal]
